FAERS Safety Report 4626502-0 (Version None)
Quarter: 2005Q2

REPORT INFORMATION
  Report Type: 
  Country: None (occurrence: None)
  Receive Date: 20050404
  Receipt Date: 20040510
  Transmission Date: 20051028
  Serious: Yes (Hospitalization, Disabling)
  Sender: FDA-Public Use
  Company Number: US-MERCK-0405USA00669

PATIENT
  Age: 52 Year
  Sex: Male
  Weight: 102 kg

DRUGS (15)
  1. HYZAAR [Concomitant]
     Indication: HYPERTENSION
     Route: 065
  2. INTERFERON (UNSPECIFIED) [Concomitant]
     Indication: HEPATITIS C
     Route: 065
  3. PHENERGAN [Concomitant]
     Route: 065
  4. OXYCONTIN [Concomitant]
     Route: 065
  5. PERCOCET [Concomitant]
     Indication: PAIN
     Route: 065
  6. VALIUM [Concomitant]
     Route: 065
  7. ASPIRIN [Concomitant]
     Route: 048
  8. ALTACE [Concomitant]
     Route: 048
  9. ATENOLOL [Concomitant]
     Route: 048
  10. ZOCOR [Concomitant]
     Route: 048
  11. LORTAB [Concomitant]
     Indication: PAIN
     Route: 048
  12. NEXIUM [Concomitant]
     Route: 065
  13. VIOXX [Suspect]
     Indication: RHEUMATOID ARTHRITIS
     Route: 048
     Dates: start: 19990101, end: 20010101
  14. CLARITIN [Concomitant]
     Route: 065
  15. HYZAAR [Concomitant]
     Route: 065

REACTIONS (32)
  - ABDOMINAL PAIN UPPER [None]
  - ACUTE MYOCARDIAL INFARCTION [None]
  - ARTHRALGIA [None]
  - BILIARY COLIC [None]
  - BLOOD GLUCOSE INCREASED [None]
  - BRONCHITIS [None]
  - CARDIAC FAILURE CONGESTIVE [None]
  - CARDIAC VALVE DISEASE [None]
  - CHEST PAIN [None]
  - CONFUSIONAL STATE [None]
  - COORDINATION ABNORMAL [None]
  - CORONARY ARTERY DISEASE [None]
  - DEPRESSED LEVEL OF CONSCIOUSNESS [None]
  - DYSARTHRIA [None]
  - DYSPNOEA [None]
  - GENERALISED OEDEMA [None]
  - HEPATIC FIBROSIS [None]
  - HEPATITIS C [None]
  - HEPATOSPLENOMEGALY [None]
  - HYPERTENSION [None]
  - HYPOKALAEMIA [None]
  - HYPOXIA [None]
  - INJURY [None]
  - INSOMNIA [None]
  - INTERVERTEBRAL DISC DISPLACEMENT [None]
  - INTERVERTEBRAL DISC PROTRUSION [None]
  - JOINT INJURY [None]
  - MYOCARDIAL INFARCTION [None]
  - MYOCARDIAL ISCHAEMIA [None]
  - SOMNOLENCE [None]
  - THERAPY NON-RESPONDER [None]
  - WEIGHT INCREASED [None]
